FAERS Safety Report 11038446 (Version 4)
Quarter: 2015Q3

REPORT INFORMATION
  Report Type: Report from Study
  Country: GR (occurrence: GR)
  Receive Date: 20150416
  Receipt Date: 20150911
  Transmission Date: 20151125
  Serious: Yes (Hospitalization, Other)
  Sender: FDA-Public Use
  Company Number: GR-BAYER-2015-121424

PATIENT
  Age: 53 Year
  Sex: Female
  Weight: 60 kg

DRUGS (5)
  1. DOXORUBICIN [Concomitant]
     Active Substance: DOXORUBICIN
     Indication: HEPATOCELLULAR CARCINOMA
     Dosage: 100 MG, UNK
  2. ARIXTRA [Concomitant]
     Active Substance: FONDAPARINUX SODIUM
     Dosage: DAILY DOSE 7.5 MG
     Dates: start: 20150202
  3. BARACLUDE [Concomitant]
     Active Substance: ENTECAVIR
     Dosage: DAILY DOSE .5 MG
     Dates: start: 2014
  4. SORAFENIB [Suspect]
     Active Substance: SORAFENIB
     Indication: HEPATOCELLULAR CARCINOMA
     Dosage: DAILY DOSE 400 MG
     Route: 048
     Dates: start: 20150128, end: 20150302
  5. LIPIODOL [Concomitant]
     Active Substance: ETHIODIZED OIL
     Indication: HEPATOCELLULAR CARCINOMA

REACTIONS (2)
  - Portal vein thrombosis [Recovering/Resolving]
  - Abdominal distension [Recovered/Resolved]

NARRATIVE: CASE EVENT DATE: 20150202
